FAERS Safety Report 7669463-2 (Version None)
Quarter: 2011Q3

REPORT INFORMATION
  Report Type: 
  Country: None (occurrence: None)
  Receive Date: 20110808
  Receipt Date: 20110727
  Transmission Date: 20111222
  Serious: Yes (Hospitalization, Other)
  Sender: FDA-Public Use
  Company Number: US-SANOFI-AVENTIS-2011SA049630

PATIENT
  Age: 67 Year
  Sex: Female

DRUGS (4)
  1. LANTUS [Suspect]
     Dosage: DOSE:40 UNIT(S)
     Route: 058
  2. CLONAZEPAM [Suspect]
     Route: 065
  3. SOLOSTAR [Suspect]
  4. NEURONTIN [Suspect]
     Route: 065

REACTIONS (10)
  - MYOCARDIAL INFARCTION [None]
  - NEPHROPATHY [None]
  - BLOOD GLUCOSE INCREASED [None]
  - VISUAL ACUITY REDUCED [None]
  - FALL [None]
  - CATARACT OPERATION [None]
  - URINARY TRACT INFECTION [None]
  - PYREXIA [None]
  - GAIT DISTURBANCE [None]
  - PRODUCT QUALITY ISSUE [None]
